FAERS Safety Report 4585616-4 (Version None)
Quarter: 2005Q1

REPORT INFORMATION
  Report Type: 
  Country: None (occurrence: None)
  Receive Date: 20050217
  Receipt Date: 20050204
  Transmission Date: 20050727
  Serious: Yes (Other)
  Sender: FDA-Public Use
  Company Number: GB-JNJFOC-20050200353

PATIENT
  Sex: Female
  Weight: 62 kg

DRUGS (1)
  1. LYRINEL XL [Suspect]
     Indication: URINARY INCONTINENCE
     Route: 049

REACTIONS (2)
  - BLADDER DISORDER [None]
  - HAEMATURIA [None]
